FAERS Safety Report 7957881-4 (Version None)
Quarter: 2011Q4

REPORT INFORMATION
  Report Type: 
  Country: None (occurrence: None)
  Receive Date: 20111201
  Receipt Date: 20111121
  Transmission Date: 20120403
  Serious: Yes (Hospitalization)
  Sender: FDA-Public Use
  Company Number: FR-GDP-11412408

PATIENT
  Sex: Female

DRUGS (3)
  1. COSMETICS [Concomitant]
  2. CUTACNYL (BENZOYL PEROXIDE) [Suspect]
     Indication: ACNE
     Dosage: (1 DF BID TOPICAL)
     Route: 061
     Dates: start: 20111013, end: 20111017
  3. ERYFLUID (ERYTHROMYCIN) [Suspect]
     Indication: ACNE
     Dosage: (1 DF BID TOPICAL)
     Route: 061
     Dates: start: 20111013

REACTIONS (5)
  - DRUG INEFFECTIVE [None]
  - HEAVY EXPOSURE TO ULTRAVIOLET LIGHT [None]
  - PRURITUS [None]
  - ERYTHEMA [None]
  - LYMPHADENOPATHY [None]
